FAERS Safety Report 18304911 (Version 2)
Quarter: 2021Q1

REPORT INFORMATION
  Report Type: Spontaneous
  Country: US (occurrence: US)
  Receive Date: 20200924
  Receipt Date: 20210121
  Transmission Date: 20210419
  Serious: No
  Sender: FDA-Public Use
  Company Number: US-DSJP-DSU-2020-127379

PATIENT
  Sex: Female

DRUGS (3)
  1. TUKYSA [Suspect]
     Active Substance: TUCATINIB
     Indication: BREAST CANCER FEMALE
     Dosage: 1 DF, BID
     Route: 065
  2. ENHERTU [Suspect]
     Active Substance: FAM-TRASTUZUMAB DERUXTECAN-NXKI
     Indication: BREAST CANCER FEMALE
     Dosage: UNK
     Route: 042
  3. TUKYSA [Suspect]
     Active Substance: TUCATINIB
     Dosage: 1 DF, BID
     Route: 065

REACTIONS (7)
  - Diarrhoea [Recovered/Resolved]
  - Constipation [Not Recovered/Not Resolved]
  - Hospice care [Unknown]
  - Muscle spasms [Unknown]
  - Blood pressure decreased [Unknown]
  - Fatigue [Unknown]
  - Decreased appetite [Unknown]

NARRATIVE: CASE EVENT DATE: 20200911
